FAERS Safety Report 7303895-7 (Version None)
Quarter: 2011Q1

REPORT INFORMATION
  Report Type: 
  Country: None (occurrence: None)
  Receive Date: 20110221
  Receipt Date: 20110216
  Transmission Date: 20110831
  Serious: Yes (Hospitalization)
  Sender: FDA-Public Use
  Company Number: B0700807A

PATIENT
  Sex: Male

DRUGS (4)
  1. VALTREX [Suspect]
     Indication: HERPES ZOSTER
     Dosage: 1500MG PER DAY
     Route: 048
     Dates: start: 20110212, end: 20110213
  2. WARFARIN SODIUM [Concomitant]
     Route: 048
  3. UNKNOWN DRUG [Concomitant]
     Route: 048
  4. BLOPRESS [Concomitant]
     Route: 048

REACTIONS (3)
  - ASTHENIA [None]
  - DYSARTHRIA [None]
  - DEPRESSED LEVEL OF CONSCIOUSNESS [None]
